FAERS Safety Report 26186539 (Version 1)
Quarter: 2025Q4

REPORT INFORMATION
  Report Type: Spontaneous
  Country: US (occurrence: US)
  Receive Date: 20251222
  Receipt Date: 20251222
  Transmission Date: 20260118
  Serious: Yes (Hospitalization)
  Sender: AMGEN
  Company Number: US-AMGEN-USASP2025250995

PATIENT
  Age: 27 Year
  Sex: Male

DRUGS (2)
  1. ADALIMUMAB [Suspect]
     Active Substance: ADALIMUMAB
     Indication: Colitis ulcerative
     Dosage: UNK, QWK
     Route: 065
  2. MESALAMINE [Concomitant]
     Active Substance: MESALAMINE

REACTIONS (2)
  - Pulmonary histoplasmosis [Unknown]
  - Pneumonia [Unknown]
